FAERS Safety Report 7804352-1 (Version None)
Quarter: 2011Q4

REPORT INFORMATION
  Report Type: 
  Country: None (occurrence: None)
  Receive Date: 20111010
  Receipt Date: 20111003
  Transmission Date: 20120403
  Serious: Yes (Death)
  Sender: FDA-Public Use
  Company Number: US-SANOFI-AVENTIS-2011SA064500

PATIENT
  Age: 69 Year
  Sex: Female

DRUGS (1)
  1. LOVENOX [Suspect]
     Indication: POSTOPERATIVE CARE
     Route: 058
     Dates: start: 20110131, end: 20110201

REACTIONS (2)
  - PULMONARY EMBOLISM [None]
  - DRUG ADMINISTRATION ERROR [None]
